FAERS Safety Report 25543960 (Version 1)
Quarter: 2025Q3

REPORT INFORMATION
  Report Type: Spontaneous
  Country: US (occurrence: None)
  Receive Date: 20250711
  Receipt Date: 20250711
  Transmission Date: 20251021
  Serious: Yes (Hospitalization)
  Sender: FDA-CTU
  Company Number: None

PATIENT
  Age: 76 Year
  Sex: Female
  Weight: 53.1 kg

DRUGS (2)
  1. DARATUMUMAB\HYALURONIDASE-FIHJ [Suspect]
     Active Substance: DARATUMUMAB\HYALURONIDASE-FIHJ
  2. LENALIDOMIDE [Suspect]
     Active Substance: LENALIDOMIDE

REACTIONS (7)
  - Dyspnoea [None]
  - Upper respiratory tract infection [None]
  - Productive cough [None]
  - Hypoxia [None]
  - Pneumonia [None]
  - Human rhinovirus test positive [None]
  - Pneumonia bacterial [None]

NARRATIVE: CASE EVENT DATE: 20250707
